FAERS Safety Report 14985564 (Version 2)
Quarter: 2018Q2

REPORT INFORMATION
  Report Type: Spontaneous
  Country: US (occurrence: US)
  Receive Date: 20180607
  Receipt Date: 20180618
  Transmission Date: 20180711
  Serious: Yes (Hospitalization)
  Sender: FDA-Public Use
  Company Number: US-TEVA-2018-US-900697

PATIENT
  Age: 70 Year
  Sex: Male

DRUGS (2)
  1. PREDNISONE. [Suspect]
     Active Substance: PREDNISONE
     Indication: RETINAL VASCULITIS
     Dosage: FOR 1 MONTH FOLLOWED BY LOWER DOSE
     Route: 065
  2. PREDNISONE. [Suspect]
     Active Substance: PREDNISONE
     Indication: RETINAL VASCULITIS

REACTIONS (1)
  - Ecthyma [Recovered/Resolved]
